FAERS Safety Report 11271754 (Version 1)
Quarter: 2015Q3

REPORT INFORMATION
  Report Type: Spontaneous
  Country: FR (occurrence: FR)
  Receive Date: 20150715
  Receipt Date: 20150715
  Transmission Date: 20151125
  Serious: Yes (Hospitalization)
  Sender: FDA-Public Use
  Company Number: FR-009507513-1507FRA004062

PATIENT
  Age: 90 Year
  Sex: Female

DRUGS (15)
  1. IBUFETUM [Suspect]
     Active Substance: IBUPROFEN
     Dosage: UNK
     Route: 003
     Dates: start: 20150527
  2. IKOREL [Suspect]
     Active Substance: NICORANDIL
     Dosage: 10 MG, BID
     Route: 048
  3. SPASFON [Suspect]
     Active Substance: PHLOROGLUCINOL
     Dosage: UNK
     Route: 048
     Dates: start: 20150527
  4. LOPERAMIDE HYDROCHLORIDE. [Suspect]
     Active Substance: LOPERAMIDE HYDROCHLORIDE
     Dosage: UNK
     Route: 048
     Dates: start: 20150527
  5. DOLENIO [Suspect]
     Active Substance: GLUCOSAMINE
     Dosage: 1 DF, QD
     Route: 048
  6. NORSET [Suspect]
     Active Substance: MIRTAZAPINE
     Dosage: 15 MG, QD
     Route: 048
  7. REMINYL [Suspect]
     Active Substance: GALANTAMINE
     Indication: DEMENTIA ALZHEIMER^S TYPE
     Dosage: 1 PROLONGED RELEASE CAPSULE, QD
     Route: 048
  8. PRIMPERAN [Suspect]
     Active Substance: METOCLOPRAMIDE HYDROCHLORIDE
     Dosage: 10 MG, (FREQUENCY 1 TO 3/QD)
     Route: 048
  9. TIAPRIDAL [Suspect]
     Active Substance: TIAPRIDE HYDROCHLORIDE
     Dosage: 0.25 SCORED TABLET, QD
     Route: 048
  10. EBIXA [Suspect]
     Active Substance: MEMANTINE HYDROCHLORIDE
     Indication: DEMENTIA ALZHEIMER^S TYPE
     Dosage: 10 MG, QD
     Route: 048
  11. BETASERC [Suspect]
     Active Substance: BETAHISTINE
     Dosage: 24 MG, BID
     Route: 048
  12. COAPROVEL [Suspect]
     Active Substance: HYDROCHLOROTHIAZIDE\IRBESARTAN
     Dosage: 1 TABLET, QD
     Route: 048
  13. DOLIPRANE [Suspect]
     Active Substance: ACETAMINOPHEN
     Dosage: 500 MG, TID
     Route: 048
  14. AMLOR [Suspect]
     Active Substance: AMLODIPINE BESYLATE
     Dosage: 5 MG, QD
     Route: 048
  15. PARIET [Suspect]
     Active Substance: RABEPRAZOLE SODIUM
     Dosage: 20 MG, QD. FORMULATION: GASTRO-RESISTANT TABLET

REACTIONS (2)
  - Hyponatraemia [Unknown]
  - Loss of consciousness [Unknown]

NARRATIVE: CASE EVENT DATE: 20150604
